FAERS Safety Report 9760164 (Version 1)
Quarter: 2013Q4

REPORT INFORMATION
  Report Type: Spontaneous
  Country: HU (occurrence: None)
  Receive Date: 20131212
  Receipt Date: 20131212
  Transmission Date: 20140711
  Serious: Yes (Hospitalization)
  Sender: FDA-Public Use
  Company Number: IPC201312-000499

PATIENT
  Age: 71 Year
  Sex: Male

DRUGS (16)
  1. FUROSEMIDE [Suspect]
  2. ALLOPURINOL (ALLOPURINOL) (ALLOPURINOL) [Suspect]
  3. RAMIPRIL (RAMIPRIL) (RAMIPRIL) [Suspect]
  4. ROFLUMILAST [Suspect]
     Dosage: 500 MICROGRAM/DAY, 84 DAYS, THEN 4 MONTHS, ORAL
     Route: 048
  5. FLUTICASONE/SALMETEROL (FLUTICASONE, SALMETEROL) (FLUTICASONE, SALMETEROL) [Suspect]
  6. BUDESONIDE/FORMOTEROL [Suspect]
  7. TIOTROPIUM [Suspect]
  8. SALBUTAMOL [Suspect]
  9. PHENPROCOUMON [Suspect]
  10. DIGITOXIN [Suspect]
  11. VERAPAMIL [Suspect]
  12. VALSARTAN [Suspect]
  13. PRAVASTATIN [Suspect]
  14. PANTOPRAZOLE (PANTOPRAZOLE) (PANTOPRAZOLE) [Suspect]
  15. INSULIN [Suspect]
  16. MIRTAZAPINE (MIRTAZAPINE) (MIRTAZAPINE) [Suspect]

REACTIONS (7)
  - Chest pain [None]
  - Dyspnoea [None]
  - Diverticulum intestinal [None]
  - Benign gastrointestinal neoplasm [None]
  - Decreased appetite [None]
  - Anaemia [None]
  - Large intestine polyp [None]
